FAERS Safety Report 5195966-9 (Version None)
Quarter: 2006Q4

REPORT INFORMATION
  Report Type: 
  Country: None (occurrence: None)
  Receive Date: 20061227
  Receipt Date: 20061227
  Transmission Date: 20070319
  Serious: Yes (Hospitalization)
  Sender: FDA-Public Use
  Company Number: None

PATIENT
  Age: 33 Year
  Sex: Female
  Weight: 96 kg

DRUGS (1)
  1. BACTRIM TRIMETHOPRIM/SULFA [Suspect]
     Indication: ACNE
     Dosage: PO
     Route: 048

REACTIONS (1)
  - HEPATITIS CHOLESTATIC [None]
